FAERS Safety Report 5835645-5 (Version None)
Quarter: 2008Q3

REPORT INFORMATION
  Report Type: 
  Country: None (occurrence: None)
  Receive Date: 20080722
  Receipt Date: 20080326
  Transmission Date: 20090109
  Serious: Yes (Hospitalization)
  Sender: FDA-Public Use
  Company Number: 2008BI007965

PATIENT
  Age: 47 Year
  Sex: Female
  Weight: 83.9154 kg

DRUGS (3)
  1. AVONEX [Suspect]
     Indication: MULTIPLE SCLEROSIS
     Dosage: 30 UG;QW;IM
     Route: 030
     Dates: start: 20030101, end: 20050101
  2. BACLOFEN [Concomitant]
  3. ZANAFLEX [Concomitant]

REACTIONS (3)
  - FALL [None]
  - MULTIPLE SCLEROSIS RELAPSE [None]
  - PERONEAL NERVE PALSY [None]
